FAERS Safety Report 25342210 (Version 1)
Quarter: 2025Q2

REPORT INFORMATION
  Report Type: Spontaneous
  Country: US (occurrence: None)
  Receive Date: 20250520
  Receipt Date: 20250520
  Transmission Date: 20250716
  Serious: Yes (Disabling, Other)
  Sender: FDA-CTU
  Company Number: None

PATIENT
  Age: 15 Year
  Sex: Female
  Weight: 47.25 kg

DRUGS (2)
  1. VTAMA [Suspect]
     Active Substance: TAPINAROF
     Indication: Dermatitis atopic
     Dosage: 1 APPLY THIN LAYER DAILY TOPICAL
     Route: 061
     Dates: start: 20250515, end: 20250516
  2. PREDNISONE [Concomitant]
     Active Substance: PREDNISONE

REACTIONS (9)
  - Urticaria [None]
  - Swelling face [None]
  - Pruritus [None]
  - Skin burning sensation [None]
  - Skin fissures [None]
  - Skin exfoliation [None]
  - Nausea [None]
  - Blister [None]
  - Lip swelling [None]

NARRATIVE: CASE EVENT DATE: 20250516
